FAERS Safety Report 9338717 (Version 1)
Quarter: 2013Q2

REPORT INFORMATION
  Report Type: Spontaneous
  Country: US (occurrence: US)
  Receive Date: 20130610
  Receipt Date: 20130610
  Transmission Date: 20140414
  Serious: No
  Sender: FDA-Public Use
  Company Number: US-BAYER-2013-069792

PATIENT
  Sex: Female

DRUGS (3)
  1. ALEVE TABLET [Suspect]
     Dosage: UNK DF, UNK
     Route: 048
  2. TOPROL [Concomitant]
  3. PRILOSEC [Concomitant]

REACTIONS (1)
  - Drug ineffective [None]
